FAERS Safety Report 22645635 (Version 1)
Quarter: 2023Q2

REPORT INFORMATION
  Report Type: Spontaneous
  Country: BR (occurrence: BR)
  Receive Date: 20230627
  Receipt Date: 20230627
  Transmission Date: 20230722
  Serious: Yes (Other)
  Sender: FDA-Public Use
  Company Number: BR-DSJP-DSE-2023-125630

PATIENT

DRUGS (1)
  1. ENHERTU [Suspect]
     Active Substance: FAM-TRASTUZUMAB DERUXTECAN-NXKI
     Indication: Breast cancer
     Dosage: UNK
     Route: 065

REACTIONS (23)
  - Erythema multiforme [Unknown]
  - Alopecia [Unknown]
  - Alopecia [Unknown]
  - Alopecia [Unknown]
  - Alopecia [Unknown]
  - Constipation [Unknown]
  - Fatigue [Recovered/Resolved]
  - Fatigue [Recovered/Resolved]
  - Fatigue [Recovered/Resolved]
  - Fatigue [Recovered/Resolved]
  - Fatigue [Recovered/Resolved]
  - Fatigue [Recovered/Resolved]
  - Dysgeusia [Unknown]
  - Dysgeusia [Unknown]
  - Oedema peripheral [Unknown]
  - Oedema peripheral [Unknown]
  - Face oedema [Unknown]
  - Face oedema [Unknown]
  - Localised oedema [Unknown]
  - Localised oedema [Unknown]
  - Dry skin [Unknown]
  - Periorbital oedema [Unknown]
  - Impaired gastric emptying [Unknown]
